FAERS Safety Report 4768388-X (Version None)
Quarter: 2005Q3

REPORT INFORMATION
  Report Type: 
  Country: None (occurrence: None)
  Receive Date: 20050906
  Receipt Date: 20050622
  Transmission Date: 20060218
  Serious: No
  Sender: FDA-Public Use
  Company Number: 2004-BP-11498BP

PATIENT
  Age: 75 Year
  Sex: Female

DRUGS (2)
  1. SPIRIVA [Suspect]
     Indication: SARCOIDOSIS
     Dosage: 18 MCG (18 MCG, QD) IH
     Route: 055
     Dates: start: 20040817
  2. SPIRIVA [Suspect]
     Indication: CHRONIC OBSTRUCTIVE PULMONARY DISEASE

REACTIONS (5)
  - ASTHENIA [None]
  - DRUG INEFFECTIVE [None]
  - LETHARGY [None]
  - PULMONARY CONGESTION [None]
  - SLUGGISHNESS [None]
